FAERS Safety Report 20833165 (Version 5)
Quarter: 2022Q3

REPORT INFORMATION
  Report Type: Spontaneous
  Country: US (occurrence: US)
  Receive Date: 20220516
  Receipt Date: 20220824
  Transmission Date: 20221027
  Serious: Yes (Other)
  Sender: FDA-Public Use
  Company Number: US-BEH-2022145361

PATIENT
  Age: 33 Year
  Sex: Male

DRUGS (8)
  1. IDELVION [Suspect]
     Active Substance: COAGULATION FACTOR IX RECOMBINANT HUMAN
     Indication: Factor VIII deficiency
     Dosage: 4000 INTERNATIONAL UNIT, QW
     Route: 042
     Dates: start: 202201
  2. IDELVION [Suspect]
     Active Substance: COAGULATION FACTOR IX RECOMBINANT HUMAN
     Indication: Factor VIII deficiency
     Dosage: 4000 INTERNATIONAL UNIT, QW
     Route: 042
     Dates: start: 202201
  3. IDELVION [Suspect]
     Active Substance: COAGULATION FACTOR IX RECOMBINANT HUMAN
     Dosage: 2 DOSES
     Route: 042
  4. IDELVION [Suspect]
     Active Substance: COAGULATION FACTOR IX RECOMBINANT HUMAN
     Dosage: 2 DOSES
     Route: 042
  5. IDELVION [Suspect]
     Active Substance: COAGULATION FACTOR IX RECOMBINANT HUMAN
     Dosage: 4000 INTERNATIONAL UNIT, QW
     Route: 042
     Dates: start: 20220114
  6. IDELVION [Suspect]
     Active Substance: COAGULATION FACTOR IX RECOMBINANT HUMAN
     Dosage: 4000 INTERNATIONAL UNIT, QW
     Route: 042
     Dates: start: 20220114
  7. IDELVION [Suspect]
     Active Substance: COAGULATION FACTOR IX RECOMBINANT HUMAN
     Dosage: UNK, PRN
     Route: 042
  8. IDELVION [Suspect]
     Active Substance: COAGULATION FACTOR IX RECOMBINANT HUMAN
     Dosage: UNK, PRN
     Route: 042

REACTIONS (6)
  - Post procedural haemorrhage [Unknown]
  - No adverse event [Unknown]
  - Off label use [Unknown]
  - Post procedural haemorrhage [Unknown]
  - Limb injury [Not Recovered/Not Resolved]
  - Limb injury [Recovered/Resolved]

NARRATIVE: CASE EVENT DATE: 20220713
